FAERS Safety Report 8918427 (Version 1)
Quarter: 2012Q4

REPORT INFORMATION
  Report Type: 
  Country: US (occurrence: US)
  Receive Date: 20121120
  Receipt Date: 20121120
  Transmission Date: 20130627
  Serious: No
  Sender: FDA-Public Use
  Company Number: US-ASTRAZENECA-2012SE17523

PATIENT
  Age: 64 Year
  Sex: Male
  Weight: 136.1 kg

DRUGS (1)
  1. NEXIUM [Suspect]
     Indication: GASTROOESOPHAGEAL REFLUX DISEASE
     Route: 048

REACTIONS (3)
  - Faecal incontinence [Unknown]
  - Diarrhoea [Unknown]
  - Abdominal pain upper [Unknown]
